APPROVED DRUG PRODUCT: FOLIC ACID
Active Ingredient: FOLIC ACID
Strength: 1MG
Dosage Form/Route: TABLET;ORAL
Application: A040756 | Product #001
Applicant: PH HEALTH LTD
Approved: Jun 4, 2010 | RLD: No | RS: No | Type: DISCN